FAERS Safety Report 11361844 (Version 2)
Quarter: 2019Q4

REPORT INFORMATION
  Report Type: Spontaneous
  Country: CH (occurrence: CH)
  Receive Date: 20150810
  Receipt Date: 20191216
  Transmission Date: 20200122
  Serious: Yes (Other)
  Sender: FDA-Public Use
  Company Number: CH-TEVA-509821ISR

PATIENT
  Age: 42 Year
  Sex: Female

DRUGS (6)
  1. CYMBALTA [Suspect]
     Active Substance: DULOXETINE HYDROCHLORIDE
     Indication: DEPRESSION
     Dosage: 60 MILLIGRAM DAILY; DOSE REGIMEN STARTED ONE YEAR PRIOR TO INITIAL REPORTING
     Route: 048
     Dates: start: 2013, end: 2014
  2. IRFEN [Suspect]
     Active Substance: IBUPROFEN
     Indication: PELVIC PAIN
     Dosage: DOSE REGIMEN UNKNOWN; CONTINUED THROUGHOUT THE PREGNANCY
     Route: 065
     Dates: start: 201406, end: 201406
  3. NEXIUM [Suspect]
     Active Substance: ESOMEPRAZOLE MAGNESIUM
     Route: 065
     Dates: start: 201406, end: 201406
  4. CYMBALTA [Suspect]
     Active Substance: DULOXETINE HYDROCHLORIDE
     Dosage: 180 MILLIGRAM DAILY; DOSE REGIMEN STARTED 3 WEEKS PRIOR TO INITIAL REPORTING; CONTINUED THROUGHOUT T
     Route: 048
     Dates: start: 2014
  5. TILUR RETARD [Suspect]
     Active Substance: ACEMETACIN
     Indication: PELVIC PAIN
     Dosage: 180 MILLIGRAM DAILY; ADMINISTERED FOR 6 WEEKS, STOPPED AT THE BEGINNING OF AUG-2014
     Route: 048
     Dates: start: 201406, end: 201408
  6. TRAMAL [Suspect]
     Active Substance: TRAMADOL
     Indication: PELVIC PAIN
     Dosage: 15 GTT DAILY; 15 DROPS = 37.5 MG; CONTINUED THROUGHOUT THE PREGNANCY
     Route: 048
     Dates: start: 201406

REACTIONS (3)
  - Cephalo-pelvic disproportion [Recovered/Resolved]
  - Maternal exposure during pregnancy [Unknown]
  - Normal newborn [Unknown]

NARRATIVE: CASE EVENT DATE: 20150211
